FAERS Safety Report 6983247-X (Version None)
Quarter: 2010Q3

REPORT INFORMATION
  Report Type: 
  Country: None (occurrence: None)
  Receive Date: 20100914
  Receipt Date: 20100723
  Transmission Date: 20110219
  Serious: No
  Sender: FDA-Public Use
  Company Number: US-PFIZER INC-2010093531

PATIENT
  Sex: Female
  Weight: 70 kg

DRUGS (5)
  1. LYRICA [Suspect]
     Indication: FIBROMYALGIA
     Dosage: 300 MG, 3X/DAY
     Route: 048
     Dates: start: 20080101
  2. TRILEPTAL [Concomitant]
     Dosage: UNK
     Dates: start: 19920101
  3. TRAZODONE [Concomitant]
     Dosage: UNK
     Dates: start: 19920101
  4. TRAMADOL [Concomitant]
     Dosage: UNK
     Dates: start: 19920101
  5. HYDROXYZINE [Concomitant]
     Dosage: UNK
     Dates: start: 19920101

REACTIONS (1)
  - WEIGHT INCREASED [None]
